FAERS Safety Report 18128524 (Version 2)
Quarter: 2020Q3

REPORT INFORMATION
  Report Type: Spontaneous
  Country: US (occurrence: US)
  Receive Date: 20200810
  Receipt Date: 20200817
  Transmission Date: 20201103
  Serious: Yes (Other)
  Sender: FDA-Public Use
  Company Number: US-AUROBINDO-AUR-APL-2020-037905

PATIENT
  Age: 61 Year
  Sex: Male

DRUGS (2)
  1. METOPROLOL TARTRATE FILM COATED TABLETS USP 100 MG [Suspect]
     Active Substance: METOPROLOL TARTRATE
     Dosage: 100 MILLIGRAM
     Route: 065
     Dates: start: 20200704
  2. METOPROLOL TARTRATE FILM COATED TABLETS USP 100 MG [Suspect]
     Active Substance: METOPROLOL TARTRATE
     Indication: HYPERTENSION
     Dosage: UNK
     Route: 065

REACTIONS (1)
  - Drug ineffective [Unknown]
